FAERS Safety Report 26051459 (Version 1)
Quarter: 2025Q4

REPORT INFORMATION
  Report Type: Spontaneous
  Country: US (occurrence: US)
  Receive Date: 20251117
  Receipt Date: 20251117
  Transmission Date: 20260118
  Serious: No
  Sender: SUNOVION
  Company Number: US-SMPA-2025SPA013715

PATIENT
  Age: 47 Year
  Sex: Male
  Weight: 74.83 kg

DRUGS (6)
  1. GEMTESA [Suspect]
     Active Substance: VIBEGRON
     Indication: Hypertonic bladder
     Dosage: 75 MG, QD
     Route: 048
     Dates: start: 20251019, end: 20251019
  2. GEMTESA [Suspect]
     Active Substance: VIBEGRON
     Indication: Ureteral spasm
  3. GEMTESA [Suspect]
     Active Substance: VIBEGRON
     Indication: Hydronephrosis
  4. GEMTESA [Suspect]
     Active Substance: VIBEGRON
     Indication: Bladder spasm
  5. BACLOFEN [Concomitant]
     Active Substance: BACLOFEN
     Indication: Back pain
     Dosage: 10 MG, TAKEN FOR A WHILE
  6. CANNABIS SATIVA SUBSP. INDICA TOP [Concomitant]
     Active Substance: CANNABIS SATIVA SUBSP. INDICA TOP
     Indication: Pain
     Dosage: 10 MG

REACTIONS (6)
  - Dizziness [Recovering/Resolving]
  - Chest discomfort [Recovering/Resolving]
  - Throat tightness [Recovering/Resolving]
  - Dyspnoea [Recovering/Resolving]
  - Heart rate increased [Recovering/Resolving]
  - Feeling hot [Recovering/Resolving]

NARRATIVE: CASE EVENT DATE: 20251019
